FAERS Safety Report 12143103 (Version 1)
Quarter: 2016Q1

REPORT INFORMATION
  Report Type: Report from Study
  Country: US (occurrence: US)
  Receive Date: 20160303
  Receipt Date: 20160303
  Transmission Date: 20160526
  Serious: Yes (Hospitalization, Other)
  Sender: FDA-Public Use
  Company Number: US-AMGEN-USASL2016024084

PATIENT
  Age: 81 Year
  Sex: Female

DRUGS (1)
  1. PROLIA [Suspect]
     Active Substance: DENOSUMAB
     Indication: OSTEOPOROSIS POSTMENOPAUSAL
     Dosage: UNK UNK, Q6MO
     Route: 065
     Dates: start: 2015

REACTIONS (7)
  - Kidney infection [Unknown]
  - Nephrolithiasis [Unknown]
  - Rash macular [Unknown]
  - Headache [Unknown]
  - Device failure [Unknown]
  - Exposed bone in jaw [Unknown]
  - Cardiac disorder [Unknown]
